FAERS Safety Report 11617902 (Version 1)
Quarter: 2015Q4

REPORT INFORMATION
  Report Type: Spontaneous
  Country: CA (occurrence: CA)
  Receive Date: 20151009
  Receipt Date: 20151009
  Transmission Date: 20160304
  Serious: Yes (Hospitalization, Other)
  Sender: FDA-Public Use
  Company Number: CA-ALLERGAN-1520654US

PATIENT
  Sex: Male

DRUGS (2)
  1. BOTOX [Suspect]
     Active Substance: ONABOTULINUMTOXINA
     Indication: SALIVARY HYPERSECRETION
     Dosage: 1 U/KG, SINGLE
     Dates: start: 20150605, end: 20150605
  2. BOTOX [Suspect]
     Active Substance: ONABOTULINUMTOXINA
     Dosage: CLOSE TO 1 U/KG, SINGLE
     Route: 042
     Dates: start: 20150710, end: 20150710

REACTIONS (9)
  - Drug ineffective [Unknown]
  - Dysphonia [Recovered/Resolved]
  - Pneumonia [Unknown]
  - Rhinovirus infection [Unknown]
  - Muscular weakness [Unknown]
  - Dysphagia [Recovered/Resolved]
  - Pneumothorax [Unknown]
  - Off label use [Unknown]
  - Bronchospasm [Unknown]

NARRATIVE: CASE EVENT DATE: 20150605
